FAERS Safety Report 8325280-1 (Version None)
Quarter: 2012Q2

REPORT INFORMATION
  Report Type: 
  Country: None (occurrence: None)
  Receive Date: 20120501
  Receipt Date: 20120416
  Transmission Date: 20120825
  Serious: Yes (Other)
  Sender: FDA-Public Use
  Company Number: GB-NOVEN-12GB004479

PATIENT

DRUGS (1)
  1. PAROXETINE [Suspect]
     Indication: DEPRESSION
     Dosage: UNK

REACTIONS (1)
  - ELECTROCARDIOGRAM ABNORMAL [None]
